FAERS Safety Report 24840479 (Version 1)
Quarter: 2025Q1

REPORT INFORMATION
  Report Type: Spontaneous
  Country: US (occurrence: None)
  Receive Date: 20250113
  Receipt Date: 20250113
  Transmission Date: 20250408
  Serious: Yes (Disabling)
  Sender: FDA-CTU
  Company Number: None

PATIENT
  Age: 55 Year
  Sex: Female
  Weight: 60.3 kg

DRUGS (7)
  1. VOQUEZNA [Suspect]
     Active Substance: VONOPRAZAN FUMARATE
     Indication: Gastrooesophageal reflux disease
     Dosage: 5 TABLETS DAILY ORAL
     Route: 048
     Dates: start: 20250109, end: 20250110
  2. HUMIRA [Concomitant]
     Active Substance: ADALIMUMAB
  3. CALCIUM [Concomitant]
     Active Substance: CALCIUM
  4. VITAMIN D [Concomitant]
     Active Substance: VITAMIN D NOS
  5. MAGNESIUM [Concomitant]
     Active Substance: MAGNESIUM
  6. Mary Ruth multivitamin [Concomitant]
  7. PREMARIN [Concomitant]
     Active Substance: ESTROGENS, CONJUGATED

REACTIONS (7)
  - Thirst [None]
  - Dry skin [None]
  - Swelling face [None]
  - Lip swelling [None]
  - Facial pain [None]
  - Periorbital swelling [None]
  - Erythema [None]

NARRATIVE: CASE EVENT DATE: 20250110
